FAERS Safety Report 5197805-9 (Version None)
Quarter: 2006Q4

REPORT INFORMATION
  Report Type: 
  Country: None (occurrence: None)
  Receive Date: 20061228
  Receipt Date: 20061215
  Transmission Date: 20070319
  Serious: Yes (Hospitalization)
  Sender: FDA-Public Use
  Company Number: 2006SP008320

PATIENT
  Age: 31 Year
  Sex: Female
  Weight: 92.9 kg

DRUGS (7)
  1. TEMOZOLOMIDE (S-P) [Suspect]
     Indication: GLIOBLASTOMA MULTIFORME
     Dosage: 310 MG; HS; PO
     Route: 048
     Dates: start: 20061123, end: 20061129
  2. SARASAR (LONAFARNIB) [Suspect]
     Indication: GLIOBLASTOMA MULTIFORME
     Dosage: 200 MG, BID; PO
     Route: 048
     Dates: start: 20061130, end: 20061206
  3. DEXAMETHASONE [Concomitant]
  4. PAXIL [Concomitant]
  5. HALCION [Concomitant]
  6. BACTRIM DS [Concomitant]
  7. KEPPRA [Concomitant]

REACTIONS (3)
  - DYSPNOEA EXERTIONAL [None]
  - PULMONARY EMBOLISM [None]
  - TACHYCARDIA [None]
